FAERS Safety Report 9154954 (Version 2)
Quarter: 2013Q1

REPORT INFORMATION
  Report Type: Report from Study
  Country: BG (occurrence: BG)
  Receive Date: 20130311
  Receipt Date: 20130318
  Transmission Date: 20140127
  Serious: Yes (Death)
  Sender: FDA-Public Use
  Company Number: BG-ASTRAZENECA-2013SE15572

PATIENT
  Age: 54 Year
  Sex: Male

DRUGS (5)
  1. SYMBICORT [Suspect]
     Indication: CHRONIC OBSTRUCTIVE PULMONARY DISEASE
     Dosage: 320 MCG/9 MCG, TWO TIMES DAILY
     Route: 055
     Dates: end: 20130117
  2. CIPROFLOXACIN [Concomitant]
  3. ONBREZ [Concomitant]
  4. SPIRIVA [Concomitant]
  5. SALBUTAMOL [Concomitant]

REACTIONS (1)
  - Death [Fatal]
